FAERS Safety Report 23881365 (Version 1)
Quarter: 2024Q2

REPORT INFORMATION
  Report Type: Spontaneous
  Country: IL (occurrence: IL)
  Receive Date: 20240521
  Receipt Date: 20240521
  Transmission Date: 20240716
  Serious: Yes (Other)
  Sender: FDA-Public Use
  Company Number: IL-PFIZER INC-PV202300047214

PATIENT
  Age: 14 Year
  Sex: Male

DRUGS (14)
  1. ELELYSO [Suspect]
     Active Substance: TALIGLUCERASE ALFA
     Indication: Gaucher^s disease
     Dosage: UNK
     Route: 042
     Dates: start: 20230227, end: 20230227
  2. ELELYSO [Suspect]
     Active Substance: TALIGLUCERASE ALFA
     Dosage: 5 VIALS
     Route: 042
     Dates: start: 20230309, end: 20230309
  3. ELELYSO [Suspect]
     Active Substance: TALIGLUCERASE ALFA
     Dosage: 5 VIALS
     Route: 042
     Dates: start: 20230417
  4. ELELYSO [Suspect]
     Active Substance: TALIGLUCERASE ALFA
     Dosage: 5 VIALS
     Route: 042
     Dates: start: 20230611, end: 20230611
  5. ELELYSO [Suspect]
     Active Substance: TALIGLUCERASE ALFA
     Dosage: 5 VIALS
     Route: 042
     Dates: start: 20230711, end: 20230711
  6. ELELYSO [Suspect]
     Active Substance: TALIGLUCERASE ALFA
     Dosage: 5 VIALS
     Route: 042
     Dates: start: 20230823
  7. ELELYSO [Suspect]
     Active Substance: TALIGLUCERASE ALFA
     Dosage: 5 VIALS
     Route: 042
     Dates: start: 20230919, end: 20230919
  8. ELELYSO [Suspect]
     Active Substance: TALIGLUCERASE ALFA
     Dosage: 5 VIALS
     Route: 042
     Dates: start: 20231018, end: 20231018
  9. ELELYSO [Suspect]
     Active Substance: TALIGLUCERASE ALFA
     Dosage: 6 VIALS
  10. ELELYSO [Suspect]
     Active Substance: TALIGLUCERASE ALFA
     Dosage: TWICE A MONTH
     Route: 042
  11. ELELYSO [Suspect]
     Active Substance: TALIGLUCERASE ALFA
     Dosage: 6 VIALS
     Route: 042
     Dates: start: 20240122
  12. ELELYSO [Suspect]
     Active Substance: TALIGLUCERASE ALFA
     Dosage: TWICE A MONTH
     Route: 042
     Dates: start: 20240215
  13. ELELYSO [Suspect]
     Active Substance: TALIGLUCERASE ALFA
     Dosage: 6 VIALS
     Route: 042
     Dates: start: 20240505, end: 20240505
  14. ELELYSO [Suspect]
     Active Substance: TALIGLUCERASE ALFA
     Dosage: 6 VIALS
     Route: 042
     Dates: start: 20240519

REACTIONS (4)
  - Tympanic membrane disorder [Unknown]
  - Off label use [Unknown]
  - Inappropriate schedule of product administration [Unknown]
  - Underdose [Unknown]

NARRATIVE: CASE EVENT DATE: 20230309
